FAERS Safety Report 9242751 (Version 1)
Quarter: 2013Q2

REPORT INFORMATION
  Report Type: Spontaneous
  Country: US (occurrence: US)
  Receive Date: 20130419
  Receipt Date: 20130419
  Transmission Date: 20140414
  Serious: No
  Sender: FDA-Public Use
  Company Number: US-BAYER-2013-047414

PATIENT
  Sex: Female

DRUGS (1)
  1. CLIMARA PRO [Suspect]
     Route: 062

REACTIONS (6)
  - Hyperhidrosis [None]
  - Crying [None]
  - Depression [None]
  - Mood altered [None]
  - Hot flush [None]
  - Product adhesion issue [None]
